FAERS Safety Report 24317027 (Version 2)
Quarter: 2024Q4

REPORT INFORMATION
  Report Type: Spontaneous
  Country: US (occurrence: US)
  Receive Date: 20240913
  Receipt Date: 20241011
  Transmission Date: 20250114
  Serious: No
  Sender: GLAXOSMITHKLINE
  Company Number: US-GSKCCFUS-Case-02096196_AE-115773

PATIENT
  Sex: Female

DRUGS (1)
  1. BREO ELLIPTA [Suspect]
     Active Substance: FLUTICASONE FUROATE\VILANTEROL TRIFENATATE
     Indication: Bronchial hyperreactivity
     Dosage: 100/25 MCG
     Route: 055

REACTIONS (2)
  - Drug ineffective [Unknown]
  - Product complaint [Unknown]
